FAERS Safety Report 21792341 (Version 1)
Quarter: 2022Q4

REPORT INFORMATION
  Report Type: Report from Study
  Country: US (occurrence: US)
  Receive Date: 20221229
  Receipt Date: 20221229
  Transmission Date: 20230112
  Serious: No
  Sender: FDA-Public Use
  Company Number: US-ABBVIE-4206581

PATIENT
  Sex: Male

DRUGS (8)
  1. RINVOQ [Suspect]
     Active Substance: UPADACITINIB
     Indication: Ankylosing spondylitis
     Route: 048
     Dates: start: 20221018
  2. FLOVENT HFA AER [Concomitant]
     Indication: Product used for unknown indication
  3. METHYLPREDNISONE TAB [Concomitant]
     Indication: Product used for unknown indication
  4. GERI-KOT TAB [Concomitant]
     Indication: Product used for unknown indication
  5. AZITHROMYCIN TAB [Concomitant]
     Indication: Product used for unknown indication
  6. PANTOPRAZOLE TAB [Concomitant]
     Indication: Product used for unknown indication
  7. SULINDAC TAB [Concomitant]
     Indication: Product used for unknown indication
  8. HYDROMORPHON TAB [Concomitant]
     Indication: Product used for unknown indication

REACTIONS (1)
  - Migraine [Unknown]
